FAERS Safety Report 4517961-2 (Version None)
Quarter: 2004Q4

REPORT INFORMATION
  Report Type: 
  Country: None (occurrence: None)
  Receive Date: 20041130
  Receipt Date: 20041116
  Transmission Date: 20050328
  Serious: Yes (Disabling, Other)
  Sender: FDA-Public Use
  Company Number: STA-AE-04-MTX-572

PATIENT
  Age: 11 Year
  Sex: Female

DRUGS (4)
  1. METHOTREXATE [Suspect]
     Dates: start: 19930101, end: 20010501
  2. ENBREL [Suspect]
     Indication: RHEUMATOID ARTHRITIS
     Dosage: 8.75 MG 2X PER 1 WK, SC
     Route: 058
     Dates: start: 20000727
  3. TRIAMCLINOLONE (TRIAMCINOLONE) [Concomitant]
  4. PREDNISOLONE [Concomitant]

REACTIONS (2)
  - SPINAL COMPRESSION FRACTURE [None]
  - VOMITING PSYCHOGENIC [None]
